FAERS Safety Report 5933912-8 (Version None)
Quarter: 2008Q4

REPORT INFORMATION
  Report Type: 
  Country: None (occurrence: None)
  Receive Date: 20081029
  Receipt Date: 20081017
  Transmission Date: 20090506
  Serious: Yes (Death, Other)
  Sender: FDA-Public Use
  Company Number: MK-ROCHE-592361

PATIENT
  Sex: Male
  Weight: 68 kg

DRUGS (2)
  1. CAPECITABINE [Suspect]
     Dosage: STRENGTH REPORTED AS 100 MG AND 500 MG
     Route: 048
     Dates: start: 20080611, end: 20080716
  2. CISPLATYL [Suspect]
     Indication: DRUG USE FOR UNKNOWN INDICATION
     Route: 065
     Dates: start: 20080610, end: 20080702

REACTIONS (3)
  - ANAEMIA [None]
  - DEATH [None]
  - THROMBOCYTOPENIA [None]
